FAERS Safety Report 9898490 (Version 1)
Quarter: 2014Q1

REPORT INFORMATION
  Report Type: Spontaneous
  Country: US (occurrence: US)
  Receive Date: 20140214
  Receipt Date: 20140214
  Transmission Date: 20141002
  Serious: Yes (Other)
  Sender: FDA-Public Use
  Company Number: US-TEVA-462471USA

PATIENT
  Sex: Female

DRUGS (2)
  1. WARFARIN [Suspect]
  2. TIKOSYN [Concomitant]

REACTIONS (2)
  - Rib fracture [Unknown]
  - Fall [Unknown]
